FAERS Safety Report 12498684 (Version 1)
Quarter: 2016Q2

REPORT INFORMATION
  Report Type: Spontaneous
  Country: US (occurrence: None)
  Receive Date: 20160624
  Receipt Date: 20160624
  Transmission Date: 20160815
  Serious: Yes (Hospitalization)
  Sender: FDA-Public Use
  Company Number: None

PATIENT
  Age: 50 Year
  Sex: Male
  Weight: 90.72 kg

DRUGS (2)
  1. ZZZQUIL NIGHTTIME SLEEP-AID [Suspect]
     Active Substance: DIPHENHYDRAMINE HYDROCHLORIDE
     Indication: SLEEP DISORDER
     Route: 048
  2. ONE A DAY [Concomitant]

REACTIONS (7)
  - Fatigue [None]
  - Anaemia [None]
  - Chills [None]
  - Infection [None]
  - Palpitations [None]
  - Chromaturia [None]
  - Asthenia [None]

NARRATIVE: CASE EVENT DATE: 20150821
